FAERS Safety Report 9790151 (Version 1)
Quarter: 2013Q4

REPORT INFORMATION
  Report Type: Spontaneous
  Country: NL (occurrence: NL)
  Receive Date: 20131231
  Receipt Date: 20131231
  Transmission Date: 20140711
  Serious: Yes (Congenital Anomaly, Other)
  Sender: FDA-Public Use
  Company Number: NL-ASTRAZENECA-2013SE93544

PATIENT
  Sex: Male

DRUGS (1)
  1. OMEPRAZOL [Suspect]
     Indication: DIAPHRAGMATIC HERNIA
     Route: 064

REACTIONS (2)
  - Psychomotor retardation [Not Recovered/Not Resolved]
  - Cerebral haemorrhage [Unknown]
